FAERS Safety Report 24380063 (Version 1)
Quarter: 2024Q3

REPORT INFORMATION
  Report Type: Spontaneous
  Country: DE (occurrence: JP)
  Receive Date: 20240930
  Receipt Date: 20240930
  Transmission Date: 20241016
  Serious: Yes (Hospitalization, Other)
  Sender: EISAI
  Company Number: DE-Eisai-EC-2024-175252

PATIENT
  Sex: Female

DRUGS (3)
  1. LENVATINIB [Suspect]
     Active Substance: LENVATINIB
     Indication: Product used for unknown indication
     Route: 048
  2. LENVATINIB [Suspect]
     Active Substance: LENVATINIB
     Route: 048
  3. KEYTRUDA [Suspect]
     Active Substance: PEMBROLIZUMAB
     Indication: Product used for unknown indication
     Route: 042

REACTIONS (6)
  - Diarrhoea [Unknown]
  - Gastrointestinal haemorrhage [Recovering/Resolving]
  - Fistula [Recovering/Resolving]
  - Tumour necrosis [Unknown]
  - Mucosal inflammation [Unknown]
  - Anorectal discomfort [Unknown]
